FAERS Safety Report 5711477-3 (Version None)
Quarter: 2008Q2

REPORT INFORMATION
  Report Type: 
  Country: None (occurrence: None)
  Receive Date: 20080421
  Receipt Date: 20080318
  Transmission Date: 20081010
  Serious: Yes (Life-Threatening, Hospitalization)
  Sender: FDA-Public Use
  Company Number: JP-MERCK-0802USA03524

PATIENT
  Age: 73 Year
  Sex: Female

DRUGS (11)
  1. PEPCID RPD [Suspect]
     Indication: PROPHYLAXIS AGAINST GASTROINTESTINAL ULCER
     Route: 048
     Dates: start: 20080111, end: 20080125
  2. LIPITOR [Suspect]
     Indication: HYPERLIPIDAEMIA
     Route: 048
     Dates: start: 20080111, end: 20080125
  3. PLETAL [Concomitant]
     Indication: ACUTE MYOCARDIAL INFARCTION
     Route: 048
     Dates: start: 20080125
  4. DAMSEL [Concomitant]
     Route: 048
  5. VOGLIBOSE [Concomitant]
     Route: 048
  6. NEUROVITAN [Concomitant]
     Route: 048
  7. PANALDINE [Suspect]
     Indication: ACUTE MYOCARDIAL INFARCTION
     Route: 048
     Dates: start: 20080108, end: 20080125
  8. DAONIL [Concomitant]
     Indication: DIABETES MELLITUS
     Route: 048
  9. LAC-B [Concomitant]
     Indication: GASTROENTERITIS
     Route: 048
     Dates: start: 20080110, end: 20080117
  10. ASPIRIN [Concomitant]
     Indication: ACUTE MYOCARDIAL INFARCTION
     Route: 048
     Dates: start: 20080108, end: 20080125
  11. ARTIST [Concomitant]
     Indication: ACUTE MYOCARDIAL INFARCTION
     Route: 048
     Dates: start: 20080111, end: 20080125

REACTIONS (1)
  - INTERSTITIAL LUNG DISEASE [None]
